FAERS Safety Report 9204029 (Version 1)
Quarter: 2013Q1

REPORT INFORMATION
  Report Type: Spontaneous
  Country: US (occurrence: None)
  Receive Date: 20120709
  Receipt Date: 20120709
  Transmission Date: 20140127
  Serious: Yes (Other)
  Sender: FDA-Public Use
  Company Number: PHHY2011US54483

PATIENT
  Age: 39 Year
  Sex: Female

DRUGS (6)
  1. GLEEVEC [Suspect]
  2. CHEMOTHERAPEUTICS NOS (NO INGREDIENTS/SUBSTANCES) [Concomitant]
  3. POTASSIUM (POTASSIUM) [Concomitant]
  4. MAGNESIUM (MAGNESIUM) [Concomitant]
  5. TASIGNA (NILOTINIB HYDROCHLORIDE) [Concomitant]
  6. ANTIEMETICS (NO INGREDIENTS/SUBSTANCES) [Concomitant]

REACTIONS (5)
  - White blood cell count abnormal [None]
  - Platelet count increased [None]
  - Dizziness [None]
  - Heart rate increased [None]
  - Drug ineffective [None]
